FAERS Safety Report 25600647 (Version 1)
Quarter: 2025Q3

REPORT INFORMATION
  Report Type: Spontaneous
  Country: US (occurrence: US)
  Receive Date: 20250724
  Receipt Date: 20250724
  Transmission Date: 20251020
  Serious: Yes (Life-Threatening, Hospitalization, Other)
  Sender: AMGEN
  Company Number: US-AMGEN-USASP2025139248

PATIENT
  Age: 60 Year
  Sex: Male

DRUGS (1)
  1. ROMIPLOSTIM [Suspect]
     Active Substance: ROMIPLOSTIM
     Indication: Thrombocytopenia
     Route: 065

REACTIONS (7)
  - Shock haemorrhagic [Recovered/Resolved]
  - Infectious pleural effusion [Unknown]
  - Enterococcal bacteraemia [Unknown]
  - Hepatic hydrothorax [Unknown]
  - Haemothorax [Unknown]
  - Enterococcus test positive [Unknown]
  - Off label use [Unknown]
